FAERS Safety Report 6861988-2 (Version None)
Quarter: 2010Q3

REPORT INFORMATION
  Report Type: 
  Country: None (occurrence: None)
  Receive Date: 20100721
  Receipt Date: 20100708
  Transmission Date: 20110219
  Serious: Yes (Hospitalization)
  Sender: FDA-Public Use
  Company Number: PHHY2010US45648

PATIENT
  Sex: Female
  Weight: 53 kg

DRUGS (1)
  1. ERL 080A ERL+TAB [Suspect]
     Indication: RENAL TRANSPLANT
     Dosage: 500 MG DAILY
     Route: 048
     Dates: start: 20091205

REACTIONS (1)
  - HYPONATRAEMIA [None]
